FAERS Safety Report 9593699 (Version 1)
Quarter: 2013Q3

REPORT INFORMATION
  Report Type: Spontaneous
  Country: US (occurrence: None)
  Receive Date: 20130930
  Receipt Date: 20130930
  Transmission Date: 20140515
  Serious: No
  Sender: FDA-Public Use
  Company Number: 1000048303

PATIENT
  Age: 67 Year
  Sex: Female

DRUGS (5)
  1. LINZESS [Suspect]
     Dosage: 145 MCG (145 MCG, 1 IN 1 D), ORAL
     Route: 048
     Dates: start: 20130812
  2. CYMBALTA (DULOXETINE HYDROCHLORIDE) (DULOXETINE HYDROCHLORIDE) [Concomitant]
  3. FENOFIBRATE (FENOFIBRATE) (FENOFIBRATE) [Concomitant]
  4. OMEPRAZOLE (OMEPRAZOLE) (OMEPRAZOLE) [Concomitant]
  5. TRAMADOL (TRAMADOL) (TRAMADOL) [Concomitant]

REACTIONS (2)
  - Abdominal distension [None]
  - Diarrhoea [None]
